FAERS Safety Report 9897122 (Version 2)
Quarter: 2014Q1

REPORT INFORMATION
  Report Type: Spontaneous
  Country: JP (occurrence: JP)
  Receive Date: 20140214
  Receipt Date: 20140329
  Transmission Date: 20141002
  Serious: Yes (Hospitalization)
  Sender: FDA-Public Use
  Company Number: JP-ROCHE-1346104

PATIENT
  Age: 89 Year
  Sex: Female
  Weight: 49 kg

DRUGS (8)
  1. BONVIVA [Suspect]
     Indication: OSTEOPOROSIS
     Route: 042
     Dates: start: 20130930, end: 201312
  2. EDIROL [Concomitant]
     Route: 048
     Dates: start: 20121029
  3. LIPITOR [Concomitant]
     Route: 048
  4. LORAMET [Concomitant]
     Route: 048
  5. TAKEPRON [Concomitant]
     Route: 048
     Dates: start: 20100201
  6. COVERSYL [Concomitant]
     Route: 048
     Dates: start: 20110509
  7. MAINTATE [Concomitant]
     Route: 048
     Dates: start: 20110509
  8. ADALAT CR [Concomitant]
     Route: 048

REACTIONS (2)
  - Altered state of consciousness [Unknown]
  - Infection [Unknown]
